FAERS Safety Report 12047795 (Version 3)
Quarter: 2016Q1

REPORT INFORMATION
  Report Type: Spontaneous
  Country: BR (occurrence: BR)
  Receive Date: 20160209
  Receipt Date: 20160316
  Transmission Date: 20160526
  Serious: Yes (Hospitalization, Other)
  Sender: FDA-Public Use
  Company Number: BR-ROCHE-1705814

PATIENT
  Sex: Male
  Weight: 90 kg

DRUGS (8)
  1. RIVOTRIL [Suspect]
     Active Substance: CLONAZEPAM
     Indication: AGITATION
  2. RIVOTRIL [Suspect]
     Active Substance: CLONAZEPAM
     Indication: PRODUCT USED FOR UNKNOWN INDICATION
     Route: 065
  3. OXCARBAZEPINE. [Suspect]
     Active Substance: OXCARBAZEPINE
     Route: 065
  4. CARBAMAZEPINE. [Concomitant]
     Active Substance: CARBAMAZEPINE
  5. DIAZEPAM. [Suspect]
     Active Substance: DIAZEPAM
     Indication: PRODUCT USED FOR UNKNOWN INDICATION
     Route: 065
  6. RIVOTRIL [Suspect]
     Active Substance: CLONAZEPAM
     Indication: AGGRESSION
     Dosage: 5 DROPS, 2.5 ML
     Route: 065
     Dates: start: 20121217
  7. OXCARBAZEPINE. [Suspect]
     Active Substance: OXCARBAZEPINE
     Indication: AGGRESSION
     Route: 065
     Dates: start: 2015
  8. RIVOTRIL [Suspect]
     Active Substance: CLONAZEPAM
     Indication: INSOMNIA
     Dosage: 3 DROPS, AT NIGHT
     Route: 065
     Dates: start: 20121217

REACTIONS (9)
  - Drug effect decreased [Unknown]
  - Aggression [Not Recovered/Not Resolved]
  - Seizure [Not Recovered/Not Resolved]
  - Frequent bowel movements [Unknown]
  - Mania [Not Recovered/Not Resolved]
  - Loss of consciousness [Unknown]
  - Tongue disorder [Unknown]
  - Weight increased [Unknown]
  - Agitation [Not Recovered/Not Resolved]
